FAERS Safety Report 4427314-3 (Version None)
Quarter: 2004Q3

REPORT INFORMATION
  Report Type: 
  Country: None (occurrence: None)
  Receive Date: 20040812
  Receipt Date: 20040809
  Transmission Date: 20050211
  Serious: Yes (Life-Threatening)
  Sender: FDA-Public Use
  Company Number: 200410779BVD

PATIENT
  Age: 63 Year
  Sex: Male
  Weight: 67 kg

DRUGS (4)
  1. AVELOX [Suspect]
     Indication: CHRONIC OBSTRUCTIVE AIRWAYS DISEASE EXACERBATED
     Dosage: 400 MG, TOTAL DAILY, ORAL
     Route: 048
     Dates: start: 20031014
  2. VIANI [Concomitant]
  3. BRONCHORETARD [Concomitant]
  4. SPIRIVA ^BOEHRINGER INGELHEIM^ [Concomitant]

REACTIONS (1)
  - DYSPNOEA EXACERBATED [None]
